FAERS Safety Report 19070338 (Version 1)
Quarter: 2021Q1

REPORT INFORMATION
  Report Type: Spontaneous
  Country: NL (occurrence: NL)
  Receive Date: 20210329
  Receipt Date: 20210329
  Transmission Date: 20210420
  Serious: No
  Sender: FDA-Public Use
  Company Number: NL-AMGEN-NLDSP2021045817

PATIENT
  Age: 37 Year
  Sex: Female
  Weight: 53 kg

DRUGS (4)
  1. TALIMOGENE LAHERPAREPVEC [Suspect]
     Active Substance: TALIMOGENE LAHERPAREPVEC
     Dosage: UNK (10^8  PFU/ML  EVERY 2 WEEKS, EXCEPT FOR THE SECOND DOSE WHICH WAS ADMINISTERED 3 WEEKS AFTER TH
     Route: 026
  2. DIAZEPAM. [Concomitant]
     Active Substance: DIAZEPAM
     Dosage: 5 MILLIGRAM
  3. TALIMOGENE LAHERPAREPVEC [Suspect]
     Active Substance: TALIMOGENE LAHERPAREPVEC
     Indication: METASTATIC MALIGNANT MELANOMA
     Dosage: UNK (10^6 PLAQUE?FORMING UNITS (PFU)/ML)
     Route: 026
  4. AMLODIPINE [Concomitant]
     Active Substance: AMLODIPINE BESYLATE
     Dosage: 5 MILLIGRAM

REACTIONS (1)
  - Oral herpes [Unknown]

NARRATIVE: CASE EVENT DATE: 20190808
